FAERS Safety Report 23093685 (Version 1)
Quarter: 2023Q4

REPORT INFORMATION
  Report Type: Report from Study
  Country: AR (occurrence: AR)
  Receive Date: 20231023
  Receipt Date: 20231023
  Transmission Date: 20240110
  Serious: Yes (Other)
  Sender: FDA-Public Use
  Company Number: AR-ABBVIE-5458225

PATIENT
  Sex: Female

DRUGS (1)
  1. HUMIRA [Suspect]
     Active Substance: ADALIMUMAB
     Indication: Hidradenitis
     Dosage: FORM STRENGTH: 80MG
     Route: 058
     Dates: start: 20200310

REACTIONS (7)
  - Eye ulcer [Not Recovered/Not Resolved]
  - Disease risk factor [Unknown]
  - Glaucoma [Unknown]
  - Eye ulcer [Recovering/Resolving]
  - Postoperative wound infection [Unknown]
  - Eye inflammation [Unknown]
  - Eye irritation [Unknown]

NARRATIVE: CASE EVENT DATE: 20230101
